FAERS Safety Report 5289121-1 (Version None)
Quarter: 2007Q1

REPORT INFORMATION
  Report Type: 
  Country: None (occurrence: None)
  Receive Date: 20070124
  Receipt Date: 20061120
  Transmission Date: 20070707
  Serious: Yes (Other)
  Sender: FDA-Public Use
  Company Number: US200611004013

PATIENT
  Age: 87 Year
  Sex: Female

DRUGS (2)
  1. FORTEO [Suspect]
     Indication: OSTEOPOROSIS
  2. FORTEO [Concomitant]

REACTIONS (6)
  - ASTHENIA [None]
  - BLOOD CALCIUM DECREASED [None]
  - GAIT DISTURBANCE [None]
  - MUSCULAR WEAKNESS [None]
  - PLATELET COUNT INCREASED [None]
  - RED BLOOD CELL SEDIMENTATION RATE INCREASED [None]
